FAERS Safety Report 20156950 (Version 2)
Quarter: 2021Q4

REPORT INFORMATION
  Report Type: Spontaneous
  Country: FR (occurrence: FR)
  Receive Date: 20211207
  Receipt Date: 20211209
  Transmission Date: 20220303
  Serious: Yes (Other)
  Sender: FDA-Public Use
  Company Number: None

PATIENT
  Age: 91 Year
  Sex: Female

DRUGS (5)
  1. SERTRALINE HYDROCHLORIDE [Suspect]
     Active Substance: SERTRALINE HYDROCHLORIDE
     Dosage: 50 MG, SINGLE
     Route: 048
     Dates: start: 20211113, end: 20211113
  2. PANTOPRAZOLE [Suspect]
     Active Substance: PANTOPRAZOLE
     Dosage: UNK
     Route: 048
     Dates: start: 20211113, end: 20211113
  3. OXAZEPAM [Suspect]
     Active Substance: OXAZEPAM
     Dosage: 10 MG, SINGLE
     Route: 048
     Dates: start: 20211113, end: 20211113
  4. QUETIAPINE [Suspect]
     Active Substance: QUETIAPINE
     Dosage: 100 MG, SINGLE
     Route: 048
     Dates: start: 20211113, end: 20211113
  5. KEPPRA [Suspect]
     Active Substance: LEVETIRACETAM
     Dosage: 250 MG, SINGLE
     Route: 048
     Dates: start: 20211113, end: 20211113

REACTIONS (4)
  - Hypothermia [Recovered/Resolved]
  - Somnolence [Recovered/Resolved]
  - Wrong patient [Unknown]
  - Product administration error [Unknown]

NARRATIVE: CASE EVENT DATE: 20211113
